FAERS Safety Report 19400382 (Version 1)
Quarter: 2021Q2

REPORT INFORMATION
  Report Type: Spontaneous
  Country: DE (occurrence: CN)
  Receive Date: 20210610
  Receipt Date: 20210610
  Transmission Date: 20210717
  Serious: Yes (Hospitalization)
  Sender: FDA-Public Use
  Company Number: CN-ELI_LILLY_AND_COMPANY-CN202106003973

PATIENT
  Age: 52 Year
  Sex: Male
  Weight: 55 kg

DRUGS (6)
  1. CALCIUM FOLINATE [Suspect]
     Active Substance: LEUCOVORIN CALCIUM
     Indication: RECTAL NEOPLASM
     Dosage: .6 G, UNK
     Route: 041
     Dates: start: 20210511, end: 20210511
  2. FLUOROURACIL. [Suspect]
     Active Substance: FLUOROURACIL
     Indication: RECTAL NEOPLASM
     Dosage: .625 G, UNK
     Route: 041
     Dates: start: 20210511, end: 20210511
  3. FLUOROURACIL. [Suspect]
     Active Substance: FLUOROURACIL
     Indication: RECTAL NEOPLASM
     Dosage: 1.875 G, UNK
     Route: 041
     Dates: start: 20210511, end: 20210511
  4. IRINOTECAN HYDROCHLORIDE. [Suspect]
     Active Substance: IRINOTECAN HYDROCHLORIDE
     Indication: RECTAL NEOPLASM
     Dosage: .28 G, UNK
     Route: 041
     Dates: start: 20210511, end: 20210511
  5. SODIUM CHLORIDE. [Concomitant]
     Active Substance: SODIUM CHLORIDE
     Indication: PRODUCT USED FOR UNKNOWN INDICATION
     Dosage: UNK, UNKNOWN
     Route: 041
  6. ERBITUX [Suspect]
     Active Substance: CETUXIMAB
     Indication: RECTAL NEOPLASM
     Dosage: 800 MG, DAILY
     Route: 041
     Dates: start: 20210511, end: 20210511

REACTIONS (1)
  - Myelosuppression [Recovering/Resolving]

NARRATIVE: CASE EVENT DATE: 20210525
